FAERS Safety Report 11647252 (Version 2)
Quarter: 2016Q1

REPORT INFORMATION
  Report Type: Report from Study
  Country: US (occurrence: US)
  Receive Date: 20151021
  Receipt Date: 20160314
  Transmission Date: 20160525
  Serious: Yes (Other)
  Sender: FDA-Public Use
  Company Number: US-AMGEN-USASL2015109365

PATIENT
  Age: 56 Year
  Sex: Female

DRUGS (1)
  1. ENBREL [Suspect]
     Active Substance: ETANERCEPT
     Indication: RHEUMATOID ARTHRITIS
     Dosage: 50 MG, UNK
     Route: 065
     Dates: start: 2009

REACTIONS (13)
  - Peripheral swelling [Unknown]
  - Incorrect dose administered [Unknown]
  - Device leakage [Unknown]
  - Device issue [Unknown]
  - Musculoskeletal disorder [Unknown]
  - Pain in extremity [Unknown]
  - Memory impairment [Unknown]
  - Device difficult to use [Unknown]
  - Adverse drug reaction [Unknown]
  - Basal cell carcinoma [Unknown]
  - Drug dose omission [Unknown]
  - Injection site pain [Unknown]
  - Device use error [Unknown]

NARRATIVE: CASE EVENT DATE: 20160217
